FAERS Safety Report 9768946 (Version 1)
Quarter: 2013Q4

REPORT INFORMATION
  Report Type: Spontaneous
  Country: GB (occurrence: GB)
  Receive Date: 20131218
  Receipt Date: 20131218
  Transmission Date: 20140711
  Serious: Yes (Death)
  Sender: FDA-Public Use
  Company Number: GB-ROCHE-1319885

PATIENT
  Age: 63 Year
  Sex: Male
  Weight: 98 kg

DRUGS (5)
  1. RIVOTRIL [Suspect]
     Indication: EPILEPSY
     Route: 048
  2. LAMICTAL [Suspect]
     Indication: EPILEPSY
     Route: 048
  3. VIMPAT [Suspect]
     Indication: EPILEPSY
     Route: 048
  4. RUFINAMIDE [Concomitant]
     Route: 065
  5. MIDAZOLAM ROCHE UNSPEC. [Concomitant]
     Route: 065

REACTIONS (1)
  - Completed suicide [Fatal]
